FAERS Safety Report 4727400-4 (Version None)
Quarter: 2005Q3

REPORT INFORMATION
  Report Type: 
  Country: None (occurrence: None)
  Receive Date: 20050727
  Receipt Date: 20050727
  Transmission Date: 20060218
  Serious: Yes (Hospitalization)
  Sender: FDA-Public Use
  Company Number: None

PATIENT
  Age: 69 Year
  Sex: Male
  Weight: 109.7 kg

DRUGS (9)
  1. GEMFIBROZIL [Suspect]
     Indication: HYPERLIPIDAEMIA
     Dosage: 1200 MG, 600 MG BI, ORAL
     Route: 048
  2. SERTRALINE HCL [Concomitant]
  3. LANOXIN [Concomitant]
  4. EPOETIN ALFA, RECOMB [Concomitant]
  5. CALCIUM CARBONATE [Concomitant]
  6. METOPROLOL TARTRATE [Concomitant]
  7. FUROSEMIDE [Concomitant]
  8. GABAPENTIN [Concomitant]
  9. SPIRONOLACTONE [Concomitant]

REACTIONS (1)
  - RHABDOMYOLYSIS [None]
